FAERS Safety Report 5614608-9 (Version None)
Quarter: 2008Q1

REPORT INFORMATION
  Report Type: 
  Country: None (occurrence: None)
  Receive Date: 20080130
  Receipt Date: 20080118
  Transmission Date: 20080703
  Serious: No
  Sender: FDA-Public Use
  Company Number: 2008SP000858

PATIENT
  Age: 52 Year
  Sex: Female
  Weight: 54.4316 kg

DRUGS (2)
  1. MIRALAX [Suspect]
     Indication: CONSTIPATION
     Dosage: 17 GM; QD; PO
     Route: 048
  2. CARDURA [Concomitant]

REACTIONS (2)
  - ABDOMINAL PAIN [None]
  - BLOOD PRESSURE INCREASED [None]
